FAERS Safety Report 6075810 (Version 16)
Quarter: 2013Q2

REPORT INFORMATION
  Report Type: Spontaneous
  Country: US (occurrence: US)
  Receive Date: 20060703
  Receipt Date: 20130506
  Transmission Date: 20140414
  Serious: Yes (Death, Hospitalization, Other)
  Sender: FDA-Public Use
  Company Number: PHEH2006US08085

PATIENT
  Age: 76 Year
  Sex: Female
  Weight: 61 kg

DRUGS (31)
  1. AREDIA [Suspect]
     Indication: BREAST CANCER METASTATIC
  2. ZOMETA [Suspect]
     Indication: BREAST CANCER METASTATIC
     Dosage: 4 MG, QMO
  3. FEMARA [Concomitant]
     Dosage: 2.5 MG,
  4. KLOR-CON [Concomitant]
     Dosage: 10 MEQ,
  5. FUROSEMIDE [Concomitant]
     Dosage: 20 MG,
  6. DILTIAZEM HYDROCHLORIDE [Concomitant]
     Indication: BLOOD PRESSURE
     Dosage: 360 MG, QD
  7. MECLIZINE [Concomitant]
     Dosage: 25 MG,
  8. VITAMIN B12 [Concomitant]
     Dosage: 100 MG, QD
  9. SINGULAIR [Concomitant]
     Indication: ASTHMA
     Dosage: 10 MG, QD
  10. ZOLOFT [Concomitant]
     Dosage: 50 MG,
  11. ZOLOFT [Concomitant]
     Dosage: 25 MG, ONCE/SINGLE
  12. OXYCODONE [Concomitant]
     Dosage: 5 MG,
  13. MIRALAX [Concomitant]
     Indication: CONSTIPATION
  14. ADVAIR [Concomitant]
     Indication: ASTHMA
  15. FASLODEX [Concomitant]
     Dosage: 250 MG,
  16. TAMOXIFEN [Concomitant]
  17. ADVIL [Concomitant]
     Indication: PAIN
  18. WARFARIN SODIUM [Concomitant]
     Indication: ANTICOAGULANT THERAPY
     Dosage: 5 MG, QD
  19. B12 [Concomitant]
     Dosage: 100 MG, QD
  20. TEMAZEPAM [Concomitant]
  21. BENGAY [Concomitant]
  22. DILTIA XT [Concomitant]
     Dosage: 240 MG, QD
  23. LASIX [Concomitant]
     Dosage: 20 MG, QD
  24. COLACE [Concomitant]
  25. ACYCLOVIR [Concomitant]
     Dosage: 200 MG, UNK
  26. CYCLOBENZAPRINE [Concomitant]
     Dosage: 10 MG, UNK
  27. FLEXERIL [Concomitant]
     Dosage: 10 MG, UNK
  28. FLAGYL [Concomitant]
     Dosage: 500 MG, UNK
  29. ALBUTEROL [Concomitant]
  30. DICLOXACILLIN [Concomitant]
  31. KEFLEX [Concomitant]
     Dosage: 500 MG, UNK

REACTIONS (93)
  - Death [Fatal]
  - Osteonecrosis of jaw [Unknown]
  - General physical health deterioration [Unknown]
  - Pain [Unknown]
  - Anxiety [Unknown]
  - Decreased interest [Unknown]
  - Exostosis [Unknown]
  - Oral pain [Unknown]
  - Pain in jaw [Unknown]
  - Eating disorder [Unknown]
  - Hypoaesthesia oral [Unknown]
  - Dental caries [Unknown]
  - Erythema [Unknown]
  - Renal failure acute [Unknown]
  - Dehydration [Unknown]
  - Vomiting [Unknown]
  - Hyperkalaemia [Unknown]
  - Chest pain [Unknown]
  - Cardiac failure congestive [Unknown]
  - Tachycardia [Unknown]
  - Arrhythmia [Unknown]
  - Bone disorder [Unknown]
  - Anaemia [Unknown]
  - Retinal vein occlusion [Unknown]
  - Visual acuity reduced [Unknown]
  - Retinal haemorrhage [Unknown]
  - Atrial flutter [Recovered/Resolved]
  - Pulmonary hypertension [Unknown]
  - Tricuspid valve incompetence [Unknown]
  - Mitral valve incompetence [Unknown]
  - Dilatation atrial [Unknown]
  - Osteoarthritis [Unknown]
  - Radiculopathy [Unknown]
  - Intervertebral disc degeneration [Unknown]
  - Cardiomegaly [Unknown]
  - Aortic calcification [Unknown]
  - Aortic arteriosclerosis [Unknown]
  - Spinal osteoarthritis [Unknown]
  - Rib fracture [Unknown]
  - Metastases to bone [Unknown]
  - Fall [Unknown]
  - Neck pain [Unknown]
  - Joint range of motion decreased [Unknown]
  - Asthenia [Unknown]
  - Fatigue [Unknown]
  - Dyspnoea [Unknown]
  - Constipation [Unknown]
  - Decreased appetite [Unknown]
  - Weight decreased [Unknown]
  - Varicose vein [Unknown]
  - Oedema peripheral [Unknown]
  - Tremor [Unknown]
  - Glossitis [Unknown]
  - Dizziness [Unknown]
  - Abscess [Unknown]
  - Retroperitoneal cancer [Unknown]
  - Malignant peritoneal neoplasm [Unknown]
  - Hepatic cancer [Unknown]
  - Pancreatitis acute [Recovered/Resolved]
  - Intestinal obstruction [Unknown]
  - Skin cancer [Unknown]
  - Ascites [Unknown]
  - Adrenal disorder [Unknown]
  - Leukocytosis [Unknown]
  - Swelling [Unknown]
  - Pleural effusion [Unknown]
  - Atelectasis [Unknown]
  - Renal cyst [Unknown]
  - Diverticulum intestinal [Unknown]
  - Hepatic lesion [Unknown]
  - Cholelithiasis [Unknown]
  - Abdominal pain [Unknown]
  - Rotator cuff syndrome [Unknown]
  - Musculoskeletal pain [Unknown]
  - Vascular calcification [Unknown]
  - Seborrhoeic keratosis [Unknown]
  - Eczema [Unknown]
  - Seborrhoea [Unknown]
  - Sialoadenitis [Unknown]
  - Syncope [Unknown]
  - Rhinitis [Unknown]
  - Bone pain [Unknown]
  - Gastroenteritis [Unknown]
  - Gait disturbance [Unknown]
  - Urinary tract infection [Unknown]
  - Influenza [Unknown]
  - Insomnia [Unknown]
  - Costochondritis [Unknown]
  - Osteosclerosis [Unknown]
  - Hiatus hernia [Unknown]
  - Osteolysis [Unknown]
  - Pain in extremity [Unknown]
  - Tendonitis [Unknown]
